FAERS Safety Report 21698506 (Version 1)
Quarter: 2022Q4

REPORT INFORMATION
  Report Type: Spontaneous
  Country: KR (occurrence: KR)
  Receive Date: 20221208
  Receipt Date: 20221208
  Transmission Date: 20230113
  Serious: Yes (Hospitalization, Other)
  Sender: FDA-Public Use
  Company Number: KR-ASTELLAS-2022US042956

PATIENT
  Age: 65 Year
  Sex: Male

DRUGS (8)
  1. TACROLIMUS [Interacting]
     Active Substance: TACROLIMUS
     Indication: Renal transplant
     Route: 065
  2. TACROLIMUS [Interacting]
     Active Substance: TACROLIMUS
     Dosage: UNK, ONCE DAILY (RESTARTED DOSE AT 90% OF BASELINE)
     Route: 065
  3. PAXLOVID [Interacting]
     Active Substance: NIRMATRELVIR\RITONAVIR
     Indication: COVID-19
     Dosage: UNK UNK, UNKNOWN FREQ.
     Route: 048
  4. PHENYTOIN [Interacting]
     Active Substance: PHENYTOIN
     Indication: Neurotoxicity
     Dosage: 1200 MG, THRICE DAILY (DAY 1)
     Route: 065
  5. PHENYTOIN [Interacting]
     Active Substance: PHENYTOIN
     Indication: Nephropathy toxic
     Dosage: 200-100 MG, TWICE DAILY (DAY 2)
     Route: 065
  6. PHENYTOIN [Interacting]
     Active Substance: PHENYTOIN
     Indication: Toxicity to various agents
     Dosage: 100 MG, ONCE DAILY (DAY 3)
     Route: 065
  7. MYCOPHENOLATE MOFETIL [Concomitant]
     Active Substance: MYCOPHENOLATE MOFETIL
     Indication: Renal transplant
     Route: 065
  8. PREDNISONE [Concomitant]
     Active Substance: PREDNISONE
     Indication: Renal transplant
     Route: 065

REACTIONS (5)
  - Toxicity to various agents [Recovered/Resolved]
  - Neurotoxicity [Recovered/Resolved]
  - Nephropathy toxic [Recovered/Resolved]
  - Drug interaction [Unknown]
  - Drug interaction [Unknown]
